FAERS Safety Report 9616706 (Version 1)
Quarter: 2013Q4

REPORT INFORMATION
  Report Type: Spontaneous
  Country: GB (occurrence: GB)
  Receive Date: 20131011
  Receipt Date: 20131011
  Transmission Date: 20140711
  Serious: Yes (Other)
  Sender: FDA-Public Use
  Company Number: GB-TEVA-436528ISR

PATIENT
  Age: 60 Year
  Sex: Male
  Weight: 110 kg

DRUGS (7)
  1. RAMIPRIL [Suspect]
     Indication: HYPERTENSION
     Dosage: 10 MILLIGRAM DAILY;
     Route: 048
     Dates: start: 20120913
  2. METFORMIN [Concomitant]
  3. GLICLAZIDE [Concomitant]
  4. FLUOXETINE HYDROCHLORIDE [Concomitant]
  5. SIMVASTATIN [Concomitant]
  6. FELODIPINE [Concomitant]
  7. SYMBICORT [Concomitant]

REACTIONS (4)
  - Cough [Not Recovered/Not Resolved]
  - Oropharyngeal pain [Not Recovered/Not Resolved]
  - Retching [Not Recovered/Not Resolved]
  - Haemoptysis [Not Recovered/Not Resolved]
